FAERS Safety Report 7289896-6 (Version None)
Quarter: 2011Q1

REPORT INFORMATION
  Report Type: 
  Country: None (occurrence: None)
  Receive Date: 20110214
  Receipt Date: 20110210
  Transmission Date: 20110831
  Serious: Yes (Hospitalization)
  Sender: FDA-Public Use
  Company Number: PE-SHIRE-SPV1-2010-02029

PATIENT
  Age: 11 Year
  Sex: Male

DRUGS (5)
  1. VALPROIC ACID [Concomitant]
     Indication: CONVULSION
     Dosage: UNK
  2. LAMOTRIGINE [Concomitant]
     Indication: CONVULSION
     Dosage: UNK
  3. FLIXOTIDE NEBUL [Concomitant]
     Indication: ASTHMA
     Dosage: 0.25 MG, 2X/DAY:BID
  4. IDURSULFASE [Suspect]
     Indication: MUCOPOLYSACCHARIDOSIS II
     Dosage: 0.5 MG/KG, 1X/WEEK
     Route: 041
  5. RISPERIDONE [Concomitant]
     Dosage: UNK
     Dates: start: 20000101

REACTIONS (3)
  - INCREASED BRONCHIAL SECRETION [None]
  - GRAND MAL CONVULSION [None]
  - ACUTE LUNG INJURY [None]
